FAERS Safety Report 12702773 (Version 1)
Quarter: 2016Q3

REPORT INFORMATION
  Report Type: Spontaneous
  Country: DE (occurrence: DE)
  Receive Date: 20160831
  Receipt Date: 20160831
  Transmission Date: 20161109
  Serious: Yes (Other)
  Sender: FDA-Public Use
  Company Number: DE-SUN PHARMACEUTICAL INDUSTRIES LTD-2016RR-122838

PATIENT
  Age: 1 Day
  Sex: Male
  Weight: 3.7 kg

DRUGS (3)
  1. DIAZEPAM. [Suspect]
     Active Substance: DIAZEPAM
     Indication: DEPRESSION
     Dosage: 8 [MG/D (-6 MG/D)]/FROM 28.04 UNTIL 26.05.2016: 8 MG/D; WEEK 37+2 UNTIL DELIVERY 3 X 2 MG/D; 0.-38.2
     Route: 064
     Dates: start: 20151003, end: 20160627
  2. FEMIBION (NEM) [Concomitant]
     Indication: PROPHYLAXIS OF NEURAL TUBE DEFECT
     Dosage: 1.5-38.2 GESTATIONAL WEEK
     Route: 064
     Dates: start: 20151015, end: 20160627
  3. SERTRALINE [Suspect]
     Active Substance: SERTRALINE HYDROCHLORIDE
     Indication: DEPRESSION
     Dosage: 100 [MG/D (50MG)]/SINCE 13.05.2016: 100 MG SERTRALINE; 0.38.2 GW
     Route: 064
     Dates: start: 20151003, end: 20160627

REACTIONS (3)
  - Drug withdrawal syndrome neonatal [Recovered/Resolved]
  - Respiratory disorder neonatal [Recovered/Resolved]
  - Atrial septal defect [Unknown]

NARRATIVE: CASE EVENT DATE: 20160627
